FAERS Safety Report 5350438-3 (Version None)
Quarter: 2007Q2

REPORT INFORMATION
  Report Type: 
  Country: None (occurrence: None)
  Receive Date: 20070608
  Receipt Date: 20070606
  Transmission Date: 20071010
  Serious: Yes (Hospitalization, Other)
  Sender: FDA-Public Use
  Company Number: JP-JNJFOC-20070301246

PATIENT
  Sex: Female
  Weight: 49 kg

DRUGS (23)
  1. REMICADE [Suspect]
     Route: 042
  2. REMICADE [Suspect]
     Dosage: DOSE 10-14 GIVEN ON UNSPECIFIED DATES.
     Route: 042
  3. REMICADE [Suspect]
     Route: 042
  4. REMICADE [Suspect]
     Route: 042
  5. REMICADE [Suspect]
     Route: 042
  6. REMICADE [Suspect]
     Route: 042
  7. REMICADE [Suspect]
     Route: 042
  8. REMICADE [Suspect]
     Route: 042
  9. REMICADE [Suspect]
     Route: 042
  10. REMICADE [Suspect]
     Route: 042
  11. REMICADE [Suspect]
     Route: 042
  12. REMICADE [Suspect]
     Indication: RHEUMATOID ARTHRITIS
     Route: 042
  13. RHEUMATREX [Suspect]
     Route: 048
  14. RHEUMATREX [Suspect]
     Indication: RHEUMATOID ARTHRITIS
     Route: 048
  15. PREDONINE [Suspect]
     Indication: RHEUMATOID ARTHRITIS
     Route: 048
  16. ISCOTIN [Concomitant]
     Indication: ANTIBIOTIC PROPHYLAXIS
     Route: 048
  17. VOLTAREN [Concomitant]
     Indication: RHEUMATOID ARTHRITIS
     Route: 048
  18. SELBEX [Concomitant]
     Indication: GASTROINTESTINAL DISORDER THERAPY
     Route: 048
  19. PYDOXAL [Concomitant]
     Route: 048
  20. FUNGIZONE [Concomitant]
     Indication: ORAL CANDIDIASIS
     Route: 048
  21. UNSPECIFIED MEDICATION [Concomitant]
     Indication: NASOPHARYNGITIS
     Route: 065
  22. RIMATIL [Concomitant]
     Route: 048
  23. RIMATIL [Concomitant]
     Indication: RHEUMATOID ARTHRITIS
     Route: 048

REACTIONS (5)
  - BREAST CANCER [None]
  - FIBROCYSTIC BREAST DISEASE [None]
  - NASOPHARYNGITIS [None]
  - ORAL CANDIDIASIS [None]
  - STOMATITIS [None]
